FAERS Safety Report 19395801 (Version 2)
Quarter: 2021Q2

REPORT INFORMATION
  Report Type: Spontaneous
  Country: JP (occurrence: JP)
  Receive Date: 20210609
  Receipt Date: 20210615
  Transmission Date: 20210717
  Serious: Yes (Hospitalization, Other)
  Sender: FDA-Public Use
  Company Number: JP-PFIZER INC-2021631104

PATIENT
  Age: 31 Year
  Sex: Female
  Weight: 68.8 kg

DRUGS (3)
  1. DOCETAXEL. [Concomitant]
     Active Substance: DOCETAXEL
     Indication: BREAST CANCER
     Dosage: 300 MG/M2, EVERY 3WEEKS FOR FOUR CYCLES
  2. EPIRUBICIN HCL [Suspect]
     Active Substance: EPIRUBICIN HYDROCHLORIDE
     Indication: BREAST CANCER
     Dosage: 400 MG/M2,EVERY 3WEEKS FOR FOUR CYCLES
  3. CYCLOPHOSPHAMIDE. [Concomitant]
     Active Substance: CYCLOPHOSPHAMIDE
     Indication: BREAST CANCER
     Dosage: 2000 MG/M2,EVERY 3WEEKS FOR FOUR CYCLES

REACTIONS (3)
  - Cardiac dysfunction [Recovered/Resolved]
  - Cardiac failure acute [Recovered/Resolved]
  - Cardiotoxicity [Recovered/Resolved]
